FAERS Safety Report 26076301 (Version 1)
Quarter: 2025Q4

REPORT INFORMATION
  Report Type: Spontaneous
  Country: US (occurrence: US)
  Receive Date: 20251121
  Receipt Date: 20251121
  Transmission Date: 20260117
  Serious: No
  Sender: SPECGX
  Company Number: US-SPECGX-T202500671

PATIENT
  Age: 68 Year
  Sex: Male
  Weight: 45 kg

DRUGS (1)
  1. ATROPINE\DIPHENOXYLATE [Suspect]
     Active Substance: ATROPINE\DIPHENOXYLATE
     Indication: Product used for unknown indication
     Dosage: 5 MILLIGRAM, QID (2.5MG TWO TABLETS UP TO FOUR TIMES A DAY)
     Route: 065

REACTIONS (1)
  - Drug screen false positive [Unknown]
